FAERS Safety Report 24602205 (Version 4)
Quarter: 2024Q4

REPORT INFORMATION
  Report Type: Report from Study
  Country: CA (occurrence: CA)
  Receive Date: 20241111
  Receipt Date: 20241220
  Transmission Date: 20250115
  Serious: No
  Sender: ROCHE
  Company Number: CA-ROCHE-3559231

PATIENT
  Sex: Female

DRUGS (6)
  1. OCREVUS [Suspect]
     Active Substance: OCRELIZUMAB
     Indication: Relapsing-remitting multiple sclerosis
     Dosage: 300 MG AT DAY 0 AND 14, THEN 600 MG EVERY 6 MONTHS
     Route: 042
     Dates: start: 20240416
  2. OCREVUS [Suspect]
     Active Substance: OCRELIZUMAB
     Dosage: 300 MG AT DAY 0 AND 14, THEN 600 MG EVERY 6 MONTHS
     Route: 042
     Dates: start: 20240606
  3. AZITHROMYCIN [Concomitant]
     Active Substance: AZITHROMYCIN
  4. AMLODIPINE [Concomitant]
     Active Substance: AMLODIPINE BESYLATE
  5. PERINDOPRIL [Concomitant]
     Active Substance: PERINDOPRIL
  6. METHYLPREDNISOLONE [Concomitant]
     Active Substance: METHYLPREDNISOLONE
     Route: 042

REACTIONS (27)
  - Sinus disorder [Unknown]
  - Pneumonia [Recovered/Resolved]
  - Ageusia [Not Recovered/Not Resolved]
  - Anosmia [Not Recovered/Not Resolved]
  - Back pain [Unknown]
  - Nasopharyngitis [Unknown]
  - Influenza like illness [Unknown]
  - Skin laceration [Unknown]
  - Pain [Not Recovered/Not Resolved]
  - Condition aggravated [Unknown]
  - Blood iron decreased [Unknown]
  - COVID-19 [Unknown]
  - Alopecia [Unknown]
  - Neuropathy peripheral [Unknown]
  - Insomnia [Unknown]
  - Back disorder [Unknown]
  - Decreased appetite [Unknown]
  - Pseudopapilloedema [Unknown]
  - Nightmare [Unknown]
  - Anxiety [Unknown]
  - Emotional disorder [Unknown]
  - Mood swings [Unknown]
  - Menopause [Unknown]
  - Hot flush [Unknown]
  - Skin ulcer [Unknown]
  - Depression [Unknown]
  - Bladder disorder [Unknown]
